FAERS Safety Report 5150684-8 (Version None)
Quarter: 2006Q4

REPORT INFORMATION
  Report Type: 
  Country: None (occurrence: None)
  Receive Date: 20061108
  Receipt Date: 20061024
  Transmission Date: 20070319
  Serious: Yes (Other)
  Sender: FDA-Public Use
  Company Number: 30461

PATIENT
  Age: 72 Year
  Sex: Female

DRUGS (4)
  1. FLECAINIDE ACETATE [Suspect]
     Indication: ATRIAL FLUTTER
     Dosage: 100 MG (50 MG,2 IN 1 DAY (S)) ORAL
     Route: 048
     Dates: start: 20010201
  2. FLECAINIDE ACETATE [Suspect]
     Indication: CARDIAC FIBRILLATION
     Dosage: 100 MG (50 MG,2 IN 1 DAY (S)) ORAL
     Route: 048
     Dates: start: 20010201
  3. FLECAINIDE ACETATE [Suspect]
     Indication: WOLFF-PARKINSON-WHITE SYNDROME
     Dosage: 100 MG (50 MG,2 IN 1 DAY (S)) ORAL
     Route: 048
     Dates: start: 20010201
  4. SINTROM [Concomitant]

REACTIONS (1)
  - WEIGHT DECREASED [None]
